FAERS Safety Report 21919439 (Version 1)
Quarter: 2023Q1

REPORT INFORMATION
  Report Type: Spontaneous
  Country: US (occurrence: US)
  Receive Date: 20230127
  Receipt Date: 20230127
  Transmission Date: 20230418
  Serious: No
  Sender: FDA-Public Use
  Company Number: US-Vifor (International) Inc.-VIT-2023-00291

PATIENT
  Age: 17 Year
  Weight: 43 kg

DRUGS (1)
  1. MIRCERA [Suspect]
     Active Substance: METHOXY POLYETHYLENE GLYCOL-EPOETIN BETA
     Indication: Product used for unknown indication
     Dosage: ONCE EVERY 2 WEEKS (Q2W) OR EVERY MONTH (QM)
     Route: 058

REACTIONS (1)
  - Off label use [Unknown]
